FAERS Safety Report 8303266-0 (Version None)
Quarter: 2012Q2

REPORT INFORMATION
  Report Type: 
  Country: None (occurrence: None)
  Receive Date: 20120423
  Receipt Date: 20120413
  Transmission Date: 20120825
  Serious: No
  Sender: FDA-Public Use
  Company Number: US-BIOGENIDEC-2012BI013214

PATIENT
  Age: 48 Year
  Sex: Male

DRUGS (2)
  1. TYSABRI [Suspect]
     Indication: MULTIPLE SCLEROSIS
     Route: 042
     Dates: start: 20080424, end: 20090915
  2. TYSABRI [Suspect]
     Route: 042
     Dates: start: 20111201

REACTIONS (5)
  - PAIN IN EXTREMITY [None]
  - DEPRESSION [None]
  - DECREASED APPETITE [None]
  - INSOMNIA [None]
  - ANXIETY [None]
